FAERS Safety Report 9215338 (Version 8)
Quarter: 2016Q4

REPORT INFORMATION
  Report Type: Report from Study
  Country: JP (occurrence: JP)
  Receive Date: 20130405
  Receipt Date: 20161010
  Transmission Date: 20170207
  Serious: Yes (Death, Life-Threatening, Hospitalization, Disabling, Other)
  Sender: FDA-Public Use
  Company Number: JP-GILEAD-2013-0072860

PATIENT
  Age: 60 Year
  Sex: Female
  Weight: 63 kg

DRUGS (14)
  1. CARELOAD [Concomitant]
     Active Substance: BERAPROST SODIUM
     Indication: PULMONARY HYPERTENSION
     Dosage: UNK
     Route: 048
     Dates: start: 20071010, end: 20120517
  2. HALFDIGOXIN [Concomitant]
     Active Substance: DIGOXIN
     Indication: PULMONARY HYPERTENSION
     Dosage: UNK
     Route: 048
     Dates: end: 20120517
  3. ADCIRCA [Concomitant]
     Active Substance: TADALAFIL
     Indication: PULMONARY HYPERTENSION
     Dosage: UNK
     Route: 048
     Dates: start: 20120220, end: 20120517
  4. REVATIO [Concomitant]
     Active Substance: SILDENAFIL CITRATE
     Indication: PULMONARY HYPERTENSION
     Route: 048
     Dates: start: 20110222, end: 20120220
  5. CEFAMEZIN [Concomitant]
     Active Substance: CEFAZOLIN
     Route: 051
     Dates: end: 20110316
  6. CEFAMEZIN                          /00288502/ [Concomitant]
     Active Substance: CEFAZOLIN
     Route: 051
     Dates: end: 20110316
  7. ALOSITOL [Concomitant]
     Active Substance: ALLOPURINOL
     Dosage: UNK
     Route: 048
     Dates: end: 20120517
  8. AMBRISENTAN [Suspect]
     Active Substance: AMBRISENTAN
     Indication: PULMONARY HYPERTENSION
     Dosage: 2.5 MG, QD
     Route: 048
     Dates: start: 20110308, end: 20110423
  9. AMBRISENTAN [Suspect]
     Active Substance: AMBRISENTAN
     Dosage: 5 MG, QD
     Route: 048
     Dates: start: 20110424, end: 20111204
  10. TRACLEER [Concomitant]
     Active Substance: BOSENTAN
     Indication: PULMONARY HYPERTENSION
     Route: 048
     Dates: start: 20070925, end: 20110307
  11. WARFARIN [Concomitant]
     Active Substance: WARFARIN
     Indication: PULMONARY HYPERTENSION
     Dosage: UNK
     Route: 048
     Dates: end: 20120517
  12. PARIET [Concomitant]
     Active Substance: RABEPRAZOLE SODIUM
     Dosage: UNK
     Route: 048
     Dates: end: 20120517
  13. KEFRAL [Concomitant]
     Active Substance: CEFACLOR
     Route: 048
     Dates: start: 20110316, end: 20110509
  14. AMBRISENTAN [Suspect]
     Active Substance: AMBRISENTAN
     Dosage: 7.5 MG, QD
     Route: 048
     Dates: start: 20111205, end: 20120517

REACTIONS (15)
  - Anaemia [Recovering/Resolving]
  - Right ventricular failure [Recovered/Resolved]
  - Fluid retention [Recovered/Resolved]
  - Haemoptysis [Recovered/Resolved]
  - Haemoptysis [Recovered/Resolved]
  - Anaemia [Not Recovered/Not Resolved]
  - Right ventricular failure [Fatal]
  - Fluid retention [Recovered/Resolved]
  - Haemoptysis [Recovered/Resolved]
  - Anaemia [Recovering/Resolving]
  - Renal impairment [Not Recovered/Not Resolved]
  - Fluid retention [Fatal]
  - Anaemia [Recovering/Resolving]
  - Right ventricular failure [Recovered/Resolved]
  - Off label use [Recovered/Resolved]

NARRATIVE: CASE EVENT DATE: 20110308
